FAERS Safety Report 15601303 (Version 1)
Quarter: 2018Q4

REPORT INFORMATION
  Report Type: Spontaneous
  Country: US (occurrence: US)
  Receive Date: 20181108
  Receipt Date: 20181108
  Transmission Date: 20190205
  Serious: No
  Sender: FDA-Public Use
  Company Number: None

PATIENT
  Age: 31 Year
  Sex: Female
  Weight: 86 kg

DRUGS (1)
  1. ISOVUE 370 [Suspect]
     Active Substance: IOPAMIDOL
     Dosage: ?          OTHER FREQUENCY:ONE TIME ORDER;?
     Route: 042
     Dates: start: 20180802, end: 20180802

REACTIONS (3)
  - Dyspnoea [None]
  - Urticaria [None]
  - Chest pain [None]

NARRATIVE: CASE EVENT DATE: 20180802
